FAERS Safety Report 21038155 (Version 3)
Quarter: 2022Q3

REPORT INFORMATION
  Report Type: Spontaneous
  Country: EG (occurrence: EG)
  Receive Date: 20220704
  Receipt Date: 20220824
  Transmission Date: 20221027
  Serious: Yes (Life-Threatening, Hospitalization, Other)
  Sender: FDA-Public Use
  Company Number: EG-NOVOPROD-931857

PATIENT
  Sex: Female
  Weight: 70 kg

DRUGS (5)
  1. INSULIN HUMAN [Suspect]
     Active Substance: INSULIN HUMAN
     Indication: Product used for unknown indication
     Dosage: 20 IU, QD IN THE MORNING
     Route: 058
  2. METOPROLOL SUCCINATE [Concomitant]
     Active Substance: METOPROLOL SUCCINATE
     Indication: Hypertension
     Dosage: 1 TABLET/ DAY
     Route: 065
  3. TRITACE MAX [Concomitant]
     Indication: Hypertension
     Dosage: 1 TABLET/ DAY
     Route: 065
  4. PENTAL [PENTOXIFYLLINE] [Concomitant]
     Indication: Cardiovascular disorder
     Dosage: 1 TABLET/ DAY
     Route: 065
  5. TEGRETOL [Concomitant]
     Active Substance: CARBAMAZEPINE
     Indication: Hypoaesthesia
     Dosage: 1 TABLET/ DAY

REACTIONS (8)
  - Diabetic coma [Unknown]
  - Device malfunction [Unknown]
  - Device delivery system issue [Unknown]
  - Device mechanical issue [Unknown]
  - Incorrect dose administered [Unknown]
  - Hypoaesthesia oral [Not Recovered/Not Resolved]
  - Dizziness [Not Recovered/Not Resolved]
  - Product storage error [Unknown]
